FAERS Safety Report 4477497-4 (Version None)
Quarter: 2004Q4

REPORT INFORMATION
  Report Type: 
  Country: None (occurrence: None)
  Receive Date: 20041018
  Receipt Date: 20041014
  Transmission Date: 20050328
  Serious: Yes (Other)
  Sender: FDA-Public Use
  Company Number: US-GLAXOSMITHKLINE-A0529937A

PATIENT
  Age: 44 Year
  Sex: Female

DRUGS (2)
  1. LAMICTAL [Suspect]
     Indication: DEPRESSION
     Dosage: 25MG PER DAY
     Route: 048
     Dates: start: 20041008
  2. RESTORIL [Concomitant]

REACTIONS (9)
  - AGGRESSION [None]
  - ARTHRALGIA [None]
  - BALANCE DISORDER [None]
  - INCREASED APPETITE [None]
  - INSOMNIA [None]
  - MYALGIA [None]
  - PSYCHOMOTOR HYPERACTIVITY [None]
  - RESTLESSNESS [None]
  - THINKING ABNORMAL [None]
